FAERS Safety Report 22089094 (Version 1)
Quarter: 2023Q1

REPORT INFORMATION
  Report Type: Report from Study
  Country: US (occurrence: US)
  Receive Date: 20230313
  Receipt Date: 20230313
  Transmission Date: 20230418
  Serious: Yes (Other)
  Sender: FDA-Public Use
  Company Number: US-ABBVIE-4334296

PATIENT
  Age: 80 Year
  Sex: Female

DRUGS (1)
  1. IMBRUVICA [Suspect]
     Active Substance: IBRUTINIB
     Indication: Chronic lymphocytic leukaemia
     Route: 048
     Dates: start: 20160301

REACTIONS (4)
  - Peripheral artery surgery [Recovering/Resolving]
  - Glycosylated haemoglobin abnormal [Unknown]
  - Renal function test abnormal [Unknown]
  - Stent placement [Unknown]

NARRATIVE: CASE EVENT DATE: 20230204
